FAERS Safety Report 16174595 (Version 1)
Quarter: 2019Q2

REPORT INFORMATION
  Report Type: Spontaneous
  Country: IT (occurrence: IT)
  Receive Date: 20190409
  Receipt Date: 20190409
  Transmission Date: 20190711
  Serious: Yes (Other)
  Sender: FDA-Public Use
  Company Number: IT-TEVA-2019-IT-1034097

PATIENT
  Sex: Male

DRUGS (1)
  1. COPAXONE [Suspect]
     Active Substance: GLATIRAMER ACETATE
     Indication: MULTIPLE SCLEROSIS
     Dosage: EVERY OTHER DAY

REACTIONS (10)
  - Multiple sclerosis [Unknown]
  - Micturition urgency [Unknown]
  - Nervousness [Unknown]
  - Drug ineffective [Unknown]
  - Hypersensitivity [Unknown]
  - Disturbance in attention [Unknown]
  - Fatigue [Unknown]
  - Dysaesthesia [Unknown]
  - Pain in extremity [Unknown]
  - Feeling hot [Unknown]
